FAERS Safety Report 23712672 (Version 1)
Quarter: 2024Q2

REPORT INFORMATION
  Report Type: Spontaneous
  Country: US (occurrence: US)
  Receive Date: 20240405
  Receipt Date: 20240405
  Transmission Date: 20240716
  Serious: No
  Sender: FDA-Public Use
  Company Number: US-MYLANLABS-2024M1026439

PATIENT
  Sex: Male
  Weight: 79.38 kg

DRUGS (1)
  1. RIVASTIGMINE TRANSDERMAL SYSTEM [Suspect]
     Active Substance: RIVASTIGMINE
     Indication: Product used for unknown indication
     Dosage: UNK
     Route: 062

REACTIONS (1)
  - Headache [Unknown]
